FAERS Safety Report 8828760 (Version 4)
Quarter: 2014Q3

REPORT INFORMATION
  Report Type: Spontaneous
  Country: US (occurrence: US)
  Receive Date: 20121008
  Receipt Date: 20140714
  Transmission Date: 20150326
  Serious: Yes (Hospitalization, Disabling, Other)
  Sender: FDA-Public Use
  Company Number: US-009507513-1210USA002366

PATIENT
  Sex: Female
  Weight: 79.37 kg

DRUGS (2)
  1. PHENTERMINE [Concomitant]
     Active Substance: PHENTERMINE
     Indication: WEIGHT DECREASED
     Dosage: 37.5 MG, QD
     Dates: end: 201110
  2. NUVARING [Suspect]
     Active Substance: ETHINYL ESTRADIOL\ETONOGESTREL
     Indication: CONTRACEPTION
     Dosage: UNK
     Route: 067
     Dates: start: 201107, end: 201110

REACTIONS (14)
  - Deep vein thrombosis [Recovered/Resolved]
  - Post-traumatic stress disorder [Unknown]
  - Stress [Unknown]
  - Migraine [Not Recovered/Not Resolved]
  - Protein S deficiency [Unknown]
  - Road traffic accident [Unknown]
  - Headache [Unknown]
  - Pulmonary mass [Unknown]
  - Neck pain [Unknown]
  - Pulmonary embolism [Recovered/Resolved]
  - Chest pain [Unknown]
  - Anxiety [Unknown]
  - Lipoma [Unknown]
  - Visual impairment [Unknown]

NARRATIVE: CASE EVENT DATE: 201110
